FAERS Safety Report 12180109 (Version 3)
Quarter: 2016Q2

REPORT INFORMATION
  Report Type: Spontaneous
  Country: US (occurrence: US)
  Receive Date: 20160315
  Receipt Date: 20160610
  Transmission Date: 20160815
  Serious: No
  Sender: FDA-Public Use
  Company Number: US-PFIZER INC-2016133968

PATIENT
  Age: 59 Year
  Sex: Female

DRUGS (13)
  1. XALKORI [Suspect]
     Active Substance: CRIZOTINIB
     Dosage: 250 MG, UNK (BID ALTERNATING WITH 250MG DAILY)
     Route: 048
     Dates: start: 20150903
  2. XALKORI [Suspect]
     Active Substance: CRIZOTINIB
     Dosage: 250 MG, UNK (ALTERNATING WITH 250 MG PO DAILY) (TAKE 1 CAPSULE ORALLY TWICE DAILY ON EVEN DAYS)
     Route: 048
     Dates: start: 20151103
  3. LASIX [Concomitant]
     Active Substance: FUROSEMIDE
     Dosage: 20 MG, 1X/DAY (EVERY MORNING) (AM) (ONE HALF TAB EVERY MORNING)
  4. ZOFRAN [Concomitant]
     Active Substance: ONDANSETRON HYDROCHLORIDE
     Indication: VOMITING
     Dosage: 4 MG, AS NEEDED (1 TAB Q 8-12 HOURS PRN)
  5. ATARAX [Concomitant]
     Active Substance: HYDROXYZINE\HYDROXYZINE HYDROCHLORIDE
     Dosage: 10 MG, AS NEEDED (Q6HR (INTERVAL)) (10 MG ORAL 6QHR INTERVAL)
     Route: 048
  6. VISTARIL [Concomitant]
     Active Substance: HYDROXYZINE PAMOATE
     Dosage: UNK UNK, 4X/DAY (25 MG, Q6HR (INTERVAL), 1-2 TABS)
     Route: 048
  7. SINGULAIR [Concomitant]
     Active Substance: MONTELUKAST SODIUM
     Dosage: 25 MG, 1X/DAY
  8. LORAZEPAM. [Concomitant]
     Active Substance: LORAZEPAM
     Dosage: 0.5 MG, UNK (1-2 TABS)
  9. XALKORI [Suspect]
     Active Substance: CRIZOTINIB
     Indication: NON-SMALL CELL LUNG CANCER
     Dosage: 250 MG, UNK (1 CAP A DAY ON ODD DA)
     Route: 048
     Dates: start: 20150115
  10. COMPAZINE [Concomitant]
     Active Substance: PROCHLORPERAZINE MALEATE
     Dosage: 10 MG, UNK
  11. GLUCOSAMINE [Concomitant]
     Active Substance: GLUCOSAMINE
     Dosage: UNK
     Route: 048
  12. IBUPROFEN. [Concomitant]
     Active Substance: IBUPROFEN
     Dosage: UNK
  13. ZOFRAN [Concomitant]
     Active Substance: ONDANSETRON HYDROCHLORIDE
     Indication: NAUSEA
     Dosage: 8 MG, 2X/DAY (30 MINUTES BEFORE CHEMOTHERAPY )
     Route: 048
     Dates: start: 20151125, end: 20151226

REACTIONS (17)
  - Neutrophil count decreased [Unknown]
  - Fatigue [Unknown]
  - Blood pressure decreased [Unknown]
  - Aspartate aminotransferase increased [Unknown]
  - Pain in jaw [Unknown]
  - Nausea [Recovered/Resolved]
  - Arthralgia [Unknown]
  - Disease progression [Unknown]
  - Alanine aminotransferase increased [Unknown]
  - White blood cell count decreased [Unknown]
  - Anxiety [Unknown]
  - Ear pain [Unknown]
  - Arthritis [Unknown]
  - Protein total decreased [Unknown]
  - Vomiting [Recovered/Resolved]
  - Non-small cell lung cancer [Unknown]
  - Respiratory rate increased [Unknown]

NARRATIVE: CASE EVENT DATE: 201508
